FAERS Safety Report 20824653 (Version 2)
Quarter: 2022Q2

REPORT INFORMATION
  Report Type: Spontaneous
  Country: IL (occurrence: IL)
  Receive Date: 20220513
  Receipt Date: 20220518
  Transmission Date: 20220720
  Serious: Yes (Hospitalization)
  Sender: FDA-Public Use
  Company Number: IL-CHIESI-2022CHF01900

PATIENT
  Sex: Male
  Weight: 2.91 kg

DRUGS (1)
  1. CUROSURF [Suspect]
     Active Substance: PORACTANT ALFA
     Indication: Neonatal respiratory distress syndrome
     Dosage: UNK

REACTIONS (2)
  - Therapeutic product effect incomplete [Recovering/Resolving]
  - Product complaint [Recovered/Resolved]
